FAERS Safety Report 21191443 (Version 1)
Quarter: 2022Q3

REPORT INFORMATION
  Report Type: Spontaneous
  Country: US (occurrence: US)
  Receive Date: 20220809
  Receipt Date: 20220809
  Transmission Date: 20221027
  Serious: No
  Sender: FDA-Public Use
  Company Number: US-JOURNEY MEDICAL CORPORATION-2022JNY00613

PATIENT
  Age: 16 Year
  Sex: Female
  Weight: 68.039 kg

DRUGS (3)
  1. QBREXZA [Suspect]
     Active Substance: GLYCOPYRRONIUM TOSYLATE
     Indication: Hyperhidrosis
     Dosage: 1X/DAY AT NIGHT
     Route: 061
     Dates: start: 20220215
  2. VITAMIN B2 [Concomitant]
     Active Substance: RIBOFLAVIN
  3. UNSPECIFIED PRN (AS NEEDED) MEDICATIONS [Concomitant]

REACTIONS (2)
  - Mydriasis [Not Recovered/Not Resolved]
  - Accidental exposure to product [Unknown]

NARRATIVE: CASE EVENT DATE: 20220201
